FAERS Safety Report 6357229-5 (Version None)
Quarter: 2009Q3

REPORT INFORMATION
  Report Type: 
  Country: None (occurrence: None)
  Receive Date: 20090911
  Receipt Date: 20090828
  Transmission Date: 20100115
  Serious: Yes (Death, Other)
  Sender: FDA-Public Use
  Company Number: AUR-APL-2009--00529

PATIENT
  Age: 66 Year
  Sex: Male

DRUGS (5)
  1. RISPERIDONE [Suspect]
  2. SERTRALINE HCL [Suspect]
  3. CLONIDINE [Suspect]
  4. NIFEDIPINE [Suspect]
  5. CLONAZEPAM [Suspect]

REACTIONS (4)
  - CONVULSION [None]
  - HYPERTHERMIA [None]
  - OVERDOSE [None]
  - VENTRICULAR FIBRILLATION [None]
